FAERS Safety Report 17065943 (Version 1)
Quarter: 2019Q4

REPORT INFORMATION
  Report Type: Spontaneous
  Country: FR (occurrence: FR)
  Receive Date: 20191122
  Receipt Date: 20191122
  Transmission Date: 20200122
  Serious: Yes (Other)
  Sender: FDA-Public Use
  Company Number: FR-MYLANLABS-2019M1112078

PATIENT
  Age: 37 Year
  Sex: Female

DRUGS (4)
  1. SOYA OIL [Concomitant]
     Active Substance: SOYBEAN OIL
     Route: 041
  2. ADALIMUMAB [Suspect]
     Active Substance: ADALIMUMAB
     Indication: PROPHYLAXIS OF ABORTION
     Dosage: 40 MG, Q2W
     Route: 058
  3. ACETYLSALICYLIC ACID [Suspect]
     Active Substance: ASPIRIN
     Indication: PROPHYLAXIS OF ABORTION
     Dosage: 100 MG, QD
     Route: 065
  4. PREDNISONE. [Suspect]
     Active Substance: PREDNISONE
     Indication: PROPHYLAXIS OF ABORTION
     Dosage: 10 MG, QD
     Route: 065

REACTIONS (5)
  - Intentional product use issue [Unknown]
  - Maternal exposure during pregnancy [Recovered/Resolved]
  - Drug ineffective [Unknown]
  - Live birth [Recovered/Resolved]
  - Off label use [Unknown]
